FAERS Safety Report 23882544 (Version 1)
Quarter: 2024Q2

REPORT INFORMATION
  Report Type: Spontaneous
  Country: PT (occurrence: PT)
  Receive Date: 20240522
  Receipt Date: 20240522
  Transmission Date: 20240715
  Serious: Yes (Death, Other)
  Sender: FDA-Public Use
  Company Number: PT-AMGEN-PRTSP2024097862

PATIENT

DRUGS (2)
  1. BEVACIZUMAB [Suspect]
     Active Substance: BEVACIZUMAB
     Indication: Cervix carcinoma
     Dosage: UNK UNK, Q3WK
     Route: 065
  2. CARBOPLATIN\PACLITAXEL [Concomitant]
     Active Substance: CARBOPLATIN\PACLITAXEL
     Indication: Cervix carcinoma
     Dosage: UNK (6-10 CYCLES)
     Route: 065

REACTIONS (4)
  - Cervix carcinoma [Unknown]
  - Death [Fatal]
  - Toxicity to various agents [Unknown]
  - Fistula [Unknown]
